FAERS Safety Report 7670218-3 (Version None)
Quarter: 2011Q3

REPORT INFORMATION
  Report Type: 
  Country: None (occurrence: None)
  Receive Date: 20110808
  Receipt Date: 20110805
  Transmission Date: 20111222
  Serious: Yes (Death)
  Sender: FDA-Public Use
  Company Number: BR-B.I. PHARMACEUTICALS,INC./RIDGEFIELD-2011-BR-00769BR

PATIENT
  Sex: Male

DRUGS (6)
  1. PRADAXA [Suspect]
     Indication: POSTOPERATIVE CARE
     Dosage: 220 MG
     Route: 048
     Dates: start: 20110725
  2. CAPTOPRIL [Concomitant]
     Indication: CARDIAC DISORDER
  3. SIMVASTATINA [Concomitant]
     Indication: BLOOD CHOLESTEROL
  4. ASPIRIN [Concomitant]
     Indication: CARDIAC DISORDER
  5. CARDILON [Concomitant]
     Indication: CARDIAC DISORDER
  6. CLONIDINA [Concomitant]

REACTIONS (2)
  - CARDIAC FAILURE [None]
  - RENAL FAILURE [None]
